FAERS Safety Report 20208218 (Version 2)
Quarter: 2021Q4

REPORT INFORMATION
  Report Type: Spontaneous
  Country: AM (occurrence: AM)
  Receive Date: 20211220
  Receipt Date: 20211229
  Transmission Date: 20220303
  Serious: Yes (Life-Threatening, Other)
  Sender: FDA-Public Use
  Company Number: AM-MLMSERVICE-20211210-3266981-1

PATIENT
  Age: 27 Year
  Sex: Female

DRUGS (9)
  1. PACLITAXEL [Suspect]
     Active Substance: PACLITAXEL
     Indication: HER2 positive breast cancer
     Dosage: 525 MG/M2, CYCLIC
     Dates: start: 2013
  2. PACLITAXEL [Suspect]
     Active Substance: PACLITAXEL
     Dosage: 175 MG/M2, CYCLIC
     Dates: start: 2013
  3. CYCLOPHOSPHAMIDE [Suspect]
     Active Substance: CYCLOPHOSPHAMIDE
     Indication: HER2 positive breast cancer
     Dosage: 600 MG/M2, EVERY 3 WEEKS
     Route: 042
  4. PERTUZUMAB [Suspect]
     Active Substance: PERTUZUMAB
     Indication: HER2 positive breast cancer
     Dosage: 420 MG, EVERY 3 WEEKS
     Dates: start: 2013
  5. PERTUZUMAB [Suspect]
     Active Substance: PERTUZUMAB
     Dosage: 840 MG
     Dates: start: 2013
  6. DOXORUBICIN [Suspect]
     Active Substance: DOXORUBICIN
     Indication: HER2 positive breast cancer
     Dosage: 360 MG/M2, EVERY 3 WEEKS
     Route: 042
     Dates: start: 2013
  7. DOXORUBICIN [Suspect]
     Active Substance: DOXORUBICIN
     Dosage: 180 MG/M2, CYCLIC
     Dates: start: 2013
  8. TRASTUZUMAB [Suspect]
     Active Substance: TRASTUZUMAB
     Indication: HER2 positive breast cancer
     Dosage: 6 MG/KG, CYCLIC
     Dates: start: 2013
  9. TRASTUZUMAB [Suspect]
     Active Substance: TRASTUZUMAB
     Dosage: 8 MG/KG
     Dates: start: 2013

REACTIONS (10)
  - Atrial fibrillation [Recovered/Resolved]
  - Cardiotoxicity [Recovered/Resolved]
  - Alopecia [Recovered/Resolved]
  - Blood pressure increased [Recovered/Resolved]
  - Abdominal pain upper [Recovered/Resolved]
  - Stomatitis [Recovered/Resolved]
  - Menstruation irregular [Recovered/Resolved]
  - Steatorrhoea [Recovered/Resolved]
  - Madarosis [Recovered/Resolved]
  - Dyspepsia [Recovered/Resolved]

NARRATIVE: CASE EVENT DATE: 20130101
